FAERS Safety Report 21712622 (Version 1)
Quarter: 2022Q4

REPORT INFORMATION
  Report Type: Spontaneous
  Country: US (occurrence: None)
  Receive Date: 20221208
  Receipt Date: 20221208
  Transmission Date: 20230113
  Serious: Yes (Death, Hospitalization)
  Sender: FDA-Public Use
  Company Number: None

PATIENT
  Age: 6 Year
  Sex: Female

DRUGS (4)
  1. EPIDIOLEX [Suspect]
     Active Substance: CANNABIDIOL
     Indication: Lennox-Gastaut syndrome
     Dosage: FREQUENCY : DAILY;?
     Route: 048
     Dates: start: 20220420, end: 20221113
  2. ONFI [Concomitant]
     Active Substance: CLOBAZAM
  3. KEPPRA [Concomitant]
     Active Substance: LEVETIRACETAM
  4. BANZEL [Concomitant]
     Active Substance: RUFINAMIDE

REACTIONS (7)
  - Pyrexia [None]
  - Cough [None]
  - Lethargy [None]
  - Urine output decreased [None]
  - Acute respiratory distress syndrome [None]
  - Cardiac failure [None]
  - Respiratory syncytial virus infection [None]

NARRATIVE: CASE EVENT DATE: 20221113
